FAERS Safety Report 23487650 (Version 6)
Quarter: 2024Q3

REPORT INFORMATION
  Report Type: Spontaneous
  Country: CN (occurrence: CN)
  Receive Date: 20240206
  Receipt Date: 20240719
  Transmission Date: 20241017
  Serious: Yes (Hospitalization, Other)
  Sender: BAXTER
  Company Number: CN-BAXTER-2024BAX011789

PATIENT
  Age: 68 Year
  Sex: Female
  Weight: 72 kg

DRUGS (11)
  1. CYCLOPHOSPHAMIDE [Suspect]
     Active Substance: CYCLOPHOSPHAMIDE
     Indication: Breast cancer female
     Dosage: 900 MILLIGRAM, Q3W
     Route: 041
     Dates: start: 20231227, end: 20231227
  2. TRASTUZUMAB [Suspect]
     Active Substance: TRASTUZUMAB
     Indication: Breast cancer female
     Dosage: 576 MILLIGRAM, Q3W, C1
     Route: 041
     Dates: start: 20230810
  3. TRASTUZUMAB [Suspect]
     Active Substance: TRASTUZUMAB
     Dosage: 576 MILLIGRAM, Q3W, C1
     Route: 041
     Dates: start: 20230810
  4. TRASTUZUMAB [Suspect]
     Active Substance: TRASTUZUMAB
     Dosage: 432 MILLIGRAM, Q3W, C2-C4
     Route: 041
     Dates: end: 20231010
  5. TRASTUZUMAB [Suspect]
     Active Substance: TRASTUZUMAB
     Dosage: 432 MILLIGRAM, Q3W, C2-C4
     Route: 041
     Dates: end: 20231010
  6. TRASTUZUMAB [Suspect]
     Active Substance: TRASTUZUMAB
     Dosage: 520 MILLIGRAM, Q3W, C9
     Route: 041
     Dates: start: 20240201, end: 20240201
  7. TRASTUZUMAB [Suspect]
     Active Substance: TRASTUZUMAB
     Dosage: 432 MILLIGRAM, Q3W, C10-C14, ONGOING
     Route: 041
     Dates: start: 20240221
  8. DOCETAXEL [Suspect]
     Active Substance: DOCETAXEL\DOCETAXEL ANHYDROUS
     Indication: Breast cancer female
     Dosage: 132.6 MILLIGRAM, Q3W, C1-C4
     Route: 041
     Dates: start: 20230810, end: 20231010
  9. DOXORUBICIN [Suspect]
     Active Substance: DOXORUBICIN
     Indication: Breast cancer female
     Dosage: 90 MILLIGRAM, Q3W
     Route: 041
     Dates: start: 20231227, end: 20231227
  10. Nao xin tong [Concomitant]
     Dosage: NAO XIN TONG JIAO NANG, 2-4 GRAIN, TWICE DAILY (BID) (START DATE: 2016) AND ONGOING
     Route: 048
  11. Nao xin qing [Concomitant]
     Dosage: NAO XIN QING JIAO NANG, 2-4 GRAIN, THREE TIMES DAILY (TID), (START DATE: 2016) AND ONGOING
     Route: 065

REACTIONS (8)
  - Coronary artery disease [Recovered/Resolved]
  - Chest discomfort [Recovered/Resolved]
  - Chest pain [Recovering/Resolving]
  - Type 2 diabetes mellitus [Recovering/Resolving]
  - Cardiomegaly [Recovering/Resolving]
  - Atrial fibrillation [Recovering/Resolving]
  - Cardiac failure [Recovering/Resolving]
  - Hypertension [Recovering/Resolving]

NARRATIVE: CASE EVENT DATE: 20240117
